FAERS Safety Report 4855996-0 (Version None)
Quarter: 2005Q4

REPORT INFORMATION
  Report Type: 
  Country: None (occurrence: None)
  Receive Date: 20051214
  Receipt Date: 20051206
  Transmission Date: 20060501
  Serious: Yes (Death, Other)
  Sender: FDA-Public Use
  Company Number: 2005JP002261

PATIENT
  Age: 13 Year
  Sex: Male

DRUGS (3)
  1. PROGRAF [Suspect]
     Indication: BONE MARROW TRANSPLANT
     Dates: start: 20040101, end: 20050415
  2. FUNGUARD (MICAFUNGIN) INJECTION [Suspect]
     Indication: BRONCHOPULMONARY ASPERGILLOSIS
     Dosage: IV DRIP
     Route: 041
     Dates: start: 20050401, end: 20050101
  3. STEROID [Concomitant]

REACTIONS (15)
  - ASPERGILLOSIS [None]
  - BRAIN ABSCESS [None]
  - BRAIN OEDEMA [None]
  - DEPRESSED LEVEL OF CONSCIOUSNESS [None]
  - DYSARTHRIA [None]
  - DYSPHAGIA [None]
  - GRAFT VERSUS HOST DISEASE [None]
  - HEPATIC ENZYME INCREASED [None]
  - IMMUNOSUPPRESSANT DRUG LEVEL INCREASED [None]
  - LUNG ABSCESS [None]
  - SPLENIC ABSCESS [None]
  - STAPHYLOCOCCAL INFECTION [None]
  - THERAPY NON-RESPONDER [None]
  - THROMBOCYTOPENIA [None]
  - THROMBOTIC MICROANGIOPATHY [None]
